FAERS Safety Report 7802647-9 (Version None)
Quarter: 2011Q4

REPORT INFORMATION
  Report Type: 
  Country: None (occurrence: None)
  Receive Date: 20111007
  Receipt Date: 20110929
  Transmission Date: 20120403
  Serious: Yes (Other)
  Sender: FDA-Public Use
  Company Number: PHEH2011US05281

PATIENT
  Sex: Female
  Weight: 82.09 kg

DRUGS (1)
  1. ZOMETA [Suspect]
     Indication: METASTASES TO BONE
     Dosage: 4 MG, EVERY 4 WEEKS
     Route: 042
     Dates: start: 20100713, end: 20110613

REACTIONS (5)
  - OSTEOMYELITIS [None]
  - ACTINOMYCOSIS [None]
  - PAIN IN JAW [None]
  - EXPOSED BONE IN JAW [None]
  - OSTEONECROSIS OF JAW [None]
